FAERS Safety Report 18626495 (Version 2)
Quarter: 2020Q4

REPORT INFORMATION
  Report Type: Spontaneous
  Country: AU (occurrence: AU)
  Receive Date: 20201217
  Receipt Date: 20201229
  Transmission Date: 20210114
  Serious: No
  Sender: FDA-Public Use
  Company Number: AU-TOLMAR, INC.-20AU024333

PATIENT
  Sex: Male

DRUGS (2)
  1. NON-TOLMAR PRODUCT (LEUPROLIDE ACETATE) [Suspect]
     Active Substance: LEUPROLIDE ACETATE
     Indication: PROSTATE CANCER
     Dosage: 22.5 MG, Q 3 MONTH
     Route: 030
  2. NON-TOLMAR PRODUCT (LEUPROLIDE ACETATE) [Suspect]
     Active Substance: LEUPROLIDE ACETATE
     Dosage: 22.5 MG, Q 3 MONTH
     Route: 030

REACTIONS (2)
  - Affective disorder [Unknown]
  - Incorrect route of product administration [Unknown]
